FAERS Safety Report 23720296 (Version 1)
Quarter: 2024Q2

REPORT INFORMATION
  Report Type: Spontaneous
  Country: US (occurrence: US)
  Receive Date: 20240408
  Receipt Date: 20240408
  Transmission Date: 20240717
  Serious: No
  Sender: FDA-Public Use
  Company Number: US-PFIZER INC-PV202400046282

PATIENT
  Age: 28 Year
  Sex: Female

DRUGS (1)
  1. IBRANCE [Suspect]
     Active Substance: PALBOCICLIB
     Indication: Breast cancer metastatic
     Dosage: UNK
     Dates: start: 2023

REACTIONS (4)
  - Abdominal pain upper [Unknown]
  - Insomnia [Unknown]
  - Constipation [Unknown]
  - Nausea [Unknown]
